FAERS Safety Report 5085569-9 (Version None)
Quarter: 2006Q3

REPORT INFORMATION
  Report Type: 
  Country: None (occurrence: None)
  Receive Date: 20060822
  Receipt Date: 20060802
  Transmission Date: 20061208
  Serious: Yes (Other)
  Sender: FDA-Public Use
  Company Number: US-GLAXOSMITHKLINE-A0614689A

PATIENT
  Age: 58 Year
  Sex: Female

DRUGS (11)
  1. ADVAIR DISKUS 100/50 [Suspect]
     Indication: ASTHMA
     Dosage: 1PUFF TWICE PER DAY
     Route: 055
     Dates: start: 20031001
  2. LIBRAX [Concomitant]
  3. FOSAMAX [Concomitant]
  4. REFRESH TEARS [Concomitant]
  5. CALCIUM GLUCONATE [Concomitant]
  6. VITAMIN D [Concomitant]
  7. FISH OIL [Concomitant]
  8. ASCORBIC ACID [Concomitant]
  9. MELATONIN [Concomitant]
  10. RHINOCORT AQUA [Concomitant]
  11. ALBUTEROL [Concomitant]

REACTIONS (9)
  - CARDIAC VALVE DISEASE [None]
  - CATARACT [None]
  - CHEST PAIN [None]
  - DYSPHONIA [None]
  - DYSPNOEA [None]
  - EPISTAXIS [None]
  - FOOD CRAVING [None]
  - HUNGER [None]
  - WEIGHT INCREASED [None]
